FAERS Safety Report 7146426-7 (Version None)
Quarter: 2010Q4

REPORT INFORMATION
  Report Type: 
  Country: None (occurrence: None)
  Receive Date: 20101208
  Receipt Date: 20100901
  Transmission Date: 20110411
  Serious: No
  Sender: FDA-Public Use
  Company Number: US-BRISTOL-MYERS SQUIBB COMPANY-15266000

PATIENT
  Age: 83 Year
  Sex: Female

DRUGS (2)
  1. PRAVACHOL [Suspect]
     Dosage: DOSE TAKEN FOR 4 YEARS,NEW BATCH ON 08AUG2010.
  2. ANTIHYPERTENSIVE [Concomitant]
     Indication: HYPERTENSION

REACTIONS (5)
  - ABDOMINAL PAIN UPPER [None]
  - DIZZINESS [None]
  - HYPERHIDROSIS [None]
  - NAUSEA [None]
  - SLEEP DISORDER [None]
